FAERS Safety Report 5454662-0 (Version None)
Quarter: 2007Q3

REPORT INFORMATION
  Report Type: 
  Country: None (occurrence: None)
  Receive Date: 20070917
  Receipt Date: 20060811
  Transmission Date: 20080115
  Serious: No
  Sender: FDA-Public Use
  Company Number: US-ASTRAZENECA-2006UW16095

PATIENT
  Age: 60 Year
  Sex: Female
  Weight: 75.7 kg

DRUGS (4)
  1. SEROQUEL [Suspect]
     Indication: SCHIZOPHRENIA
     Dosage: BID OR TID DAILY
     Route: 048
     Dates: start: 20051001
  2. TRILAFON [Concomitant]
  3. AMBIEN [Concomitant]
  4. XANAX [Concomitant]

REACTIONS (7)
  - DELUSION [None]
  - DRUG INEFFECTIVE [None]
  - FEELING JITTERY [None]
  - LIBIDO DECREASED [None]
  - MENTAL IMPAIRMENT [None]
  - ROAD TRAFFIC ACCIDENT [None]
  - WEIGHT INCREASED [None]
